FAERS Safety Report 10839875 (Version 1)
Quarter: 2015Q1

REPORT INFORMATION
  Report Type: Report from Study
  Country: US (occurrence: US)
  Receive Date: 20150220
  Receipt Date: 20150220
  Transmission Date: 20150721
  Serious: Yes (Other)
  Sender: FDA-Public Use
  Company Number: US-ABBVIE-14P-163-1239576-00

PATIENT
  Age: 38 Year
  Sex: Female

DRUGS (15)
  1. BENTYL [Concomitant]
     Active Substance: DICYCLOMINE HYDROCHLORIDE
     Indication: CROHN^S DISEASE
  2. PRILOSEC [Concomitant]
     Active Substance: OMEPRAZOLE MAGNESIUM
     Indication: GASTROOESOPHAGEAL REFLUX DISEASE
  3. COD LIVER OIL [Concomitant]
     Active Substance: COD LIVER OIL
     Indication: VITAMIN SUPPLEMENTATION
     Dosage: PILL
  4. MAXZIDE [Concomitant]
     Active Substance: HYDROCHLOROTHIAZIDE\TRIAMTERENE
     Indication: HYPERTENSION
  5. FIBER SUPPLEMENT [Concomitant]
     Indication: VITAMIN SUPPLEMENTATION
  6. FLONASE [Concomitant]
     Active Substance: FLUTICASONE PROPIONATE
     Indication: HYPERSENSITIVITY
     Dosage: 2 PUFFS IN EACH NARE
  7. ALLEGRA [Concomitant]
     Active Substance: FEXOFENADINE HYDROCHLORIDE
     Indication: HYPERSENSITIVITY
  8. ONE-A-DAY NOS [Concomitant]
     Active Substance: MINERALS\VITAMINS
     Indication: VITAMIN SUPPLEMENTATION
  9. HUMIRA [Suspect]
     Active Substance: ADALIMUMAB
     Indication: CROHN^S DISEASE
     Dates: start: 20120920
  10. LIALDA [Concomitant]
     Active Substance: MESALAMINE
     Indication: CROHN^S DISEASE
     Dosage: PILLS
     Route: 048
  11. BENADRYL [Concomitant]
     Active Substance: DIPHENHYDRAMINE HYDROCHLORIDE
     Indication: PRODUCT USED FOR UNKNOWN INDICATION
     Dosage: PRIOR TO EACH HUMIRA INJECTION
  12. ANUSOL [Concomitant]
     Indication: HAEMORRHOIDS
  13. ORTHO TRI CYCLEN [Concomitant]
     Active Substance: ETHINYL ESTRADIOL\NORGESTIMATE
     Indication: CONTRACEPTION
     Dosage: PILLS
  14. AIRBOURNE [Concomitant]
     Indication: PRODUCT USED FOR UNKNOWN INDICATION
  15. MAXZIDE [Concomitant]
     Active Substance: HYDROCHLOROTHIAZIDE\TRIAMTERENE
     Indication: BLOOD PRESSURE
     Dosage: 37.5/25MG

REACTIONS (11)
  - Muscle spasms [Unknown]
  - Wrong technique in drug usage process [Unknown]
  - Paranasal sinus hypersecretion [Unknown]
  - Arthralgia [Unknown]
  - Injection site pain [Unknown]
  - Eye pruritus [Unknown]
  - Injection site pain [Recovering/Resolving]
  - Incorrect dose administered [Unknown]
  - Breast operation [Recovering/Resolving]
  - Nausea [Unknown]
  - Bronchitis [Unknown]

NARRATIVE: CASE EVENT DATE: 20120920
